FAERS Safety Report 9370998 (Version 1)
Quarter: 2013Q2

REPORT INFORMATION
  Report Type: Spontaneous
  Country: US (occurrence: US)
  Receive Date: 20130627
  Receipt Date: 20130627
  Transmission Date: 20140414
  Serious: No
  Sender: FDA-Public Use
  Company Number: US-009507513-1306USA013322

PATIENT
  Age: 56 Year
  Sex: Male

DRUGS (27)
  1. RANITIDINE [Concomitant]
  2. ASPIRIN [Concomitant]
  3. LOPERAMIDE HYDROCHLORIDE [Concomitant]
  4. TYLENOL ARTHRITIS PAIN [Concomitant]
  5. MAXALT [Concomitant]
  6. NASONEX [Concomitant]
  7. CELEXA [Concomitant]
  8. PRANDIN (DEFLAZACORT) [Concomitant]
  9. XANAX [Concomitant]
  10. ALLOPURINOL [Concomitant]
  11. OMEPRAZOLE [Concomitant]
  12. OMEGA-3 MARINE TRIGLYCERIDES [Concomitant]
  13. VITAMIN B COMPLEX [Concomitant]
  14. VITAMIN D (UNSPECIFIED) [Concomitant]
  15. VITAMIN E [Concomitant]
  16. MAGNESIUM (UNSPECIFIED) [Concomitant]
  17. CYCLOSPORINE [Concomitant]
  18. VITAMINS (UNSPECIFIED) [Concomitant]
  19. XIFAXAN [Concomitant]
  20. VICTRELIS [Suspect]
     Indication: CHRONIC HEPATITIS C
     Dosage: 800 MG, TID
     Route: 048
     Dates: start: 20130307
  21. PEGASYS [Suspect]
  22. RIBASPHERE [Suspect]
  23. NEUPOGEN [Concomitant]
  24. AMBIEN [Concomitant]
  25. EXCEDRIN MIGRAINE [Concomitant]
  26. METFORMIN [Concomitant]
  27. URSODIOL [Concomitant]

REACTIONS (3)
  - Abdominal discomfort [Unknown]
  - Nausea [Unknown]
  - Vomiting [Unknown]
